FAERS Safety Report 6029713-5 (Version None)
Quarter: 2009Q1

REPORT INFORMATION
  Report Type: 
  Country: None (occurrence: None)
  Receive Date: 20090107
  Receipt Date: 20081226
  Transmission Date: 20090719
  Serious: Yes (Life-Threatening)
  Sender: FDA-Public Use
  Company Number: JP-PFIZER INC-2009151484

PATIENT

DRUGS (1)
  1. SULPERAZON [Suspect]
     Indication: PROPHYLAXIS
     Dosage: UNK
     Dates: start: 20081014, end: 20081014

REACTIONS (3)
  - ANAPHYLACTIC SHOCK [None]
  - BLOOD PRESSURE DECREASED [None]
  - RESPIRATORY ARREST [None]
